FAERS Safety Report 8791494 (Version 1)
Quarter: 2012Q4

REPORT INFORMATION
  Report Type: Spontaneous
  Country: US (occurrence: None)
  Receive Date: 20120912
  Receipt Date: 20120912
  Transmission Date: 20130627
  Serious: Yes (Other)
  Sender: FDA-Public Use
  Company Number: US-1193917

PATIENT
  Age: 42 Year
  Sex: Female

DRUGS (2)
  1. MAXIDEX [Suspect]
     Route: 047
  2. MAXIDEX [Suspect]
     Route: 047

REACTIONS (4)
  - Cushingoid [None]
  - Obesity [None]
  - Myopathy [None]
  - Ecchymosis [None]
